FAERS Safety Report 4886308-4 (Version None)
Quarter: 2006Q1

REPORT INFORMATION
  Report Type: 
  Country: None (occurrence: None)
  Receive Date: 20060120
  Receipt Date: 20050317
  Transmission Date: 20060701
  Serious: Yes (Death)
  Sender: FDA-Public Use
  Company Number: US-MERCK-0503USA03388

PATIENT
  Age: 55 Year
  Sex: Male
  Weight: 82 kg

DRUGS (9)
  1. VIOXX [Suspect]
     Indication: OSTEOARTHRITIS
     Route: 048
     Dates: start: 19980101, end: 20001119
  2. VIOXX [Suspect]
     Indication: TENDONITIS
     Route: 048
     Dates: start: 19980101, end: 20001119
  3. ULTRAM [Concomitant]
     Route: 065
  4. VOLMAX [Concomitant]
     Route: 065
  5. PREVACID [Concomitant]
     Route: 065
  6. SINGULAIR [Concomitant]
     Route: 065
  7. MAXZIDE [Concomitant]
     Route: 065
  8. PROPULSID [Concomitant]
     Route: 065
  9. HELIDAC [Concomitant]
     Route: 065
     Dates: start: 19990426

REACTIONS (12)
  - ARRHYTHMIA [None]
  - ARTERIOSCLEROSIS [None]
  - ARTERIOSCLEROSIS CORONARY ARTERY [None]
  - ASCITES [None]
  - BRONCHITIS [None]
  - BRONCHOPNEUMONIA [None]
  - CARDIAC ARREST [None]
  - CARDIOVASCULAR DISORDER [None]
  - DEPRESSED LEVEL OF CONSCIOUSNESS [None]
  - RENAL CYST [None]
  - VENTRICULAR FIBRILLATION [None]
  - VENTRICULAR HYPERTROPHY [None]
